FAERS Safety Report 7026384-6 (Version None)
Quarter: 2010Q4

REPORT INFORMATION
  Report Type: 
  Country: None (occurrence: None)
  Receive Date: 20101004
  Receipt Date: 20100925
  Transmission Date: 20110411
  Serious: Yes (Other)
  Sender: FDA-Public Use
  Company Number: US-PFIZER INC-2010122629

PATIENT
  Sex: Male

DRUGS (3)
  1. CHANTIX [Suspect]
     Indication: SMOKING CESSATION THERAPY
     Dosage: 0.5 MG, 1X/DAY
     Route: 048
     Dates: start: 20090220, end: 20100415
  2. CHANTIX [Suspect]
     Dosage: UNK
     Dates: end: 20100801
  3. CHANTIX [Suspect]
     Dosage: UNK
     Dates: start: 20100901

REACTIONS (3)
  - MOOD SWINGS [None]
  - MUSCLE SPASMS [None]
  - PERSONALITY CHANGE [None]
